FAERS Safety Report 7020523-9 (Version None)
Quarter: 2010Q3

REPORT INFORMATION
  Report Type: 
  Country: None (occurrence: None)
  Receive Date: 20100929
  Receipt Date: 20100621
  Transmission Date: 20110219
  Serious: No
  Sender: FDA-Public Use
  Company Number: A0866333A

PATIENT
  Age: 11 Year
  Sex: Male

DRUGS (2)
  1. LAMICTAL [Suspect]
     Dosage: 125MG TWICE PER DAY
     Route: 048
     Dates: start: 20090101, end: 20100612
  2. NO CONCURRENT MEDICATION [Concomitant]

REACTIONS (1)
  - RASH [None]
